FAERS Safety Report 9563271 (Version 7)
Quarter: 2019Q3

REPORT INFORMATION
  Report Type: Spontaneous
  Country: CA (occurrence: CA)
  Receive Date: 20130927
  Receipt Date: 20190802
  Transmission Date: 20191005
  Serious: Yes (Life-Threatening, Hospitalization, Disabling, Other)
  Sender: FDA-Public Use
  Company Number: CA-MERCK-1309CAN011160

PATIENT
  Age: 56 Year
  Sex: Female
  Weight: 89 kg

DRUGS (15)
  1. RASILEZ [Suspect]
     Active Substance: ALISKIREN
     Indication: OFF LABEL USE
     Dosage: 150 MILLIGRAM, 1 EVERY 1 DAY
     Route: 048
     Dates: start: 20111205, end: 20120202
  2. CYANOCOBALAMIN. [Concomitant]
     Active Substance: CYANOCOBALAMIN
     Indication: PRODUCT USED FOR UNKNOWN INDICATION
     Dosage: 1 DOSAGE FORM
     Route: 048
  3. METFORMINA SANDOZ [Suspect]
     Active Substance: METFORMIN HYDROCHLORIDE
     Indication: PRODUCT USED FOR UNKNOWN INDICATION
     Dosage: 850 MILLIGRAM, 3 EVERY 1 DAY
     Route: 048
  4. IRBESARTAN SANDOZ [Suspect]
     Active Substance: IRBESARTAN
     Indication: HYPERTENSION
     Dosage: 300 MILLIGRAM, 1 EVERY 1 DAY
     Route: 048
     Dates: start: 201101
  5. LIPITOR [Suspect]
     Active Substance: ATORVASTATIN CALCIUM
     Indication: PRODUCT USED FOR UNKNOWN INDICATION
     Dosage: 20 MILLIGRAM, 1 EVERY 1 DAY
     Route: 048
  6. AMLODIPINE [Suspect]
     Active Substance: AMLODIPINE BESYLATE
     Indication: PRODUCT USED FOR UNKNOWN INDICATION
     Dosage: 5 MILLIGRAM, QD, (ALSO REPORTED AS 1 DOSAGE FORM)
     Route: 048
  7. NORVASC [Suspect]
     Active Substance: AMLODIPINE BESYLATE
     Indication: PRODUCT USED FOR UNKNOWN INDICATION
     Dosage: 5 MILLIGRAM, 1 EVERY 1 DAY
     Route: 048
  8. RASILEZ [Suspect]
     Active Substance: ALISKIREN
     Indication: MICROALBUMINURIA
     Dosage: UNK
     Route: 065
  9. AVAPRO [Concomitant]
     Active Substance: IRBESARTAN
     Indication: PRODUCT USED FOR UNKNOWN INDICATION
     Dosage: 1 DOSAGE FORM, QD
     Route: 065
  10. ESOMEPRAZOLE MAGNESIUM. [Suspect]
     Active Substance: ESOMEPRAZOLE MAGNESIUM
     Indication: PRODUCT USED FOR UNKNOWN INDICATION
     Dosage: 40 MILLIGRAM (1 DOSAGE FORM), 1 EVERY 1 DAY
     Route: 048
  11. RASILEZ [Suspect]
     Active Substance: ALISKIREN
     Indication: HYPERTENSION
     Dosage: UNK
     Route: 065
  12. GLUCOPHAGE [Concomitant]
     Active Substance: METFORMIN HYDROCHLORIDE
     Indication: PRODUCT USED FOR UNKNOWN INDICATION
     Route: 065
  13. ASPIRIN. [Suspect]
     Active Substance: ASPIRIN
     Indication: PRODUCT USED FOR UNKNOWN INDICATION
     Dosage: 80 MILLIGRAM, 1 EVERY 1 DAY(S)
     Route: 048
  14. JANUVIA [Suspect]
     Active Substance: SITAGLIPTIN PHOSPHATE
     Indication: PRODUCT USED FOR UNKNOWN INDICATION
     Dosage: 100 MILLIGRAM, 1 EVERY 1 DAY
     Route: 048
  15. ALISKIREN [Suspect]
     Active Substance: ALISKIREN
     Indication: HYPERTENSION
     Dosage: 150 MILLIGRAM, QD
     Route: 048

REACTIONS (23)
  - Cerebrovascular accident [Unknown]
  - Affect lability [Unknown]
  - Dysphagia [Unknown]
  - Fall [Recovered/Resolved with Sequelae]
  - Hemiparesis [Unknown]
  - Confusional state [Unknown]
  - Adjustment disorder [Recovered/Resolved with Sequelae]
  - Motor dysfunction [Recovered/Resolved with Sequelae]
  - Aphasia [Unknown]
  - Neurologic neglect syndrome [Recovered/Resolved with Sequelae]
  - Hemiplegia [Unknown]
  - Muscular weakness [Unknown]
  - Impaired work ability [Unknown]
  - Dysarthria [Recovered/Resolved with Sequelae]
  - Eating disorder [Recovered/Resolved with Sequelae]
  - Coordination abnormal [Recovered/Resolved with Sequelae]
  - Anxiety [Unknown]
  - Personality disorder [Unknown]
  - Asthenia [Recovered/Resolved with Sequelae]
  - Nausea [Recovered/Resolved with Sequelae]
  - Muscle spasticity [Unknown]
  - Carotid artery thrombosis [Recovered/Resolved with Sequelae]
  - Sensory loss [Recovered/Resolved with Sequelae]

NARRATIVE: CASE EVENT DATE: 20120201
